FAERS Safety Report 7502992-0 (Version None)
Quarter: 2011Q2

REPORT INFORMATION
  Report Type: 
  Country: None (occurrence: None)
  Receive Date: 20110525
  Receipt Date: 20100922
  Transmission Date: 20111010
  Serious: No
  Sender: FDA-Public Use
  Company Number: US-NOVEN-ALL1-2010-05015

PATIENT
  Sex: Male
  Weight: 93.878 kg

DRUGS (8)
  1. LOSARTAN POTASSIUM [Concomitant]
     Dosage: 25 MG, 1X/DAY:QD
     Route: 048
     Dates: start: 20100801
  2. PROZAC [Concomitant]
     Dosage: 20 MG, 1X/DAY:QD
     Route: 048
     Dates: start: 20100601
  3. TENEX [Concomitant]
     Dosage: 1 MG, 1X/DAY:QD
     Route: 048
     Dates: start: 20100920
  4. PROAIR HFA [Concomitant]
     Dosage: UNK, AS REQ'D
     Route: 055
  5. TENEX [Concomitant]
  6. DAYTRANA [Suspect]
     Dosage: 30 MG, 1X/DAY:QD
     Route: 062
     Dates: start: 20100921
  7. ADVAIR DISKUS 100/50 [Concomitant]
     Dosage: 250/50, 1X/DAY:QD
     Route: 055
  8. SINGULAIR [Concomitant]
     Dosage: 10 MG, 1X/DAY:QD
     Route: 048

REACTIONS (3)
  - PRODUCT QUALITY ISSUE [None]
  - NO ADVERSE EVENT [None]
  - DRUG ADMINISTERED AT INAPPROPRIATE SITE [None]
